FAERS Safety Report 5509363-7 (Version None)
Quarter: 2007Q4

REPORT INFORMATION
  Report Type: 
  Country: None (occurrence: None)
  Receive Date: 20071106
  Receipt Date: 20071024
  Transmission Date: 20080405
  Serious: Yes (Hospitalization, Other)
  Sender: FDA-Public Use
  Company Number: 2007S1000480

PATIENT
  Sex: Male
  Weight: 243 kg

DRUGS (8)
  1. CUBICIN [Suspect]
     Indication: CATHETER RELATED INFECTION
     Dosage: 6 MG/KG;Q24H;IV
     Route: 042
     Dates: start: 20071018, end: 20071024
  2. ALLOPURINOL [Concomitant]
  3. COMBIVENT [Concomitant]
  4. COUMADIN [Concomitant]
  5. FLOVENT [Concomitant]
  6. FROSEMIDE [Concomitant]
  7. HYDROXYZINE [Concomitant]
  8. HEPARIN [Concomitant]

REACTIONS (3)
  - HYPERCAPNIA [None]
  - LOSS OF CONSCIOUSNESS [None]
  - MYOCLONUS [None]
